FAERS Safety Report 7610246-7 (Version None)
Quarter: 2011Q3

REPORT INFORMATION
  Report Type: 
  Country: None (occurrence: None)
  Receive Date: 20110706
  Receipt Date: 20110621
  Transmission Date: 20111222
  Serious: Yes (Other)
  Sender: FDA-Public Use
  Company Number: 2011SP029159

PATIENT
  Sex: Female

DRUGS (2)
  1. PUREGON (FOLLITROPIN BETA /01348901/) [Suspect]
  2. PUREGON (FOLLITROPIN BETA /01348901/) [Suspect]
     Indication: PRODUCT USED FOR UNKNOWN INDICATION

REACTIONS (3)
  - OEDEMA MOUTH [None]
  - HYPERSENSITIVITY [None]
  - FACE OEDEMA [None]
